FAERS Safety Report 6859107-1 (Version None)
Quarter: 2010Q3

REPORT INFORMATION
  Report Type: 
  Country: None (occurrence: None)
  Receive Date: 20100719
  Receipt Date: 20080326
  Transmission Date: 20110219
  Serious: No
  Sender: FDA-Public Use
  Company Number: US-PFIZER INC-2008016640

PATIENT
  Sex: Female
  Weight: 50.8 kg

DRUGS (5)
  1. CHANTIX [Suspect]
     Indication: SMOKING CESSATION THERAPY
     Route: 048
     Dates: start: 20080208, end: 20080216
  2. CHANTIX [Suspect]
     Indication: TOBACCO ABUSE
  3. OXYCODONE HCL [Concomitant]
  4. PREMARIN [Concomitant]
  5. PERCODAN-DEMI [Concomitant]
     Indication: PAIN
     Route: 048

REACTIONS (2)
  - ACTIVITIES OF DAILY LIVING IMPAIRED [None]
  - MALAISE [None]
